FAERS Safety Report 20670478 (Version 2)
Quarter: 2022Q2

REPORT INFORMATION
  Report Type: Report from Study
  Country: US (occurrence: US)
  Receive Date: 20220404
  Receipt Date: 20220610
  Transmission Date: 20220720
  Serious: Yes (Hospitalization, Other)
  Sender: FDA-Public Use
  Company Number: US-TAKEDA-2021TUS083340

PATIENT
  Age: 11 Year
  Sex: Female

DRUGS (12)
  1. TEDUGLUTIDE [Suspect]
     Active Substance: TEDUGLUTIDE
     Indication: Short-bowel syndrome
     Dosage: 1.15 MILLIGRAM, QD
     Route: 058
     Dates: start: 20210625
  2. TEDUGLUTIDE [Suspect]
     Active Substance: TEDUGLUTIDE
     Indication: Short-bowel syndrome
     Dosage: 1.15 MILLIGRAM, QD
     Route: 058
     Dates: start: 20210625
  3. TEDUGLUTIDE [Suspect]
     Active Substance: TEDUGLUTIDE
     Indication: Short-bowel syndrome
     Dosage: 1.15 MILLIGRAM, QD
     Route: 058
     Dates: start: 20210625
  4. TEDUGLUTIDE [Suspect]
     Active Substance: TEDUGLUTIDE
     Indication: Short-bowel syndrome
     Dosage: 1.15 MILLIGRAM, QD
     Route: 058
     Dates: start: 20210625
  5. TEDUGLUTIDE [Suspect]
     Active Substance: TEDUGLUTIDE
     Dosage: 1.15 MILLIGRAM, QD
     Route: 058
     Dates: start: 20210630
  6. TEDUGLUTIDE [Suspect]
     Active Substance: TEDUGLUTIDE
     Dosage: 1.15 MILLIGRAM, QD
     Route: 058
     Dates: start: 20210630
  7. TEDUGLUTIDE [Suspect]
     Active Substance: TEDUGLUTIDE
     Dosage: 1.15 MILLIGRAM, QD
     Route: 058
     Dates: start: 20210630
  8. TEDUGLUTIDE [Suspect]
     Active Substance: TEDUGLUTIDE
     Dosage: 1.15 MILLIGRAM, QD
     Route: 058
     Dates: start: 20210630
  9. TEDUGLUTIDE [Suspect]
     Active Substance: TEDUGLUTIDE
     Dosage: 1.15 MILLIGRAM, QD
     Route: 058
     Dates: start: 202107
  10. TEDUGLUTIDE [Suspect]
     Active Substance: TEDUGLUTIDE
     Dosage: 1.15 MILLIGRAM, QD
     Route: 058
     Dates: start: 202107
  11. TEDUGLUTIDE [Suspect]
     Active Substance: TEDUGLUTIDE
     Dosage: 1.15 MILLIGRAM, QD
     Route: 058
     Dates: start: 202107
  12. TEDUGLUTIDE [Suspect]
     Active Substance: TEDUGLUTIDE
     Dosage: 1.15 MILLIGRAM, QD
     Route: 058
     Dates: start: 202107

REACTIONS (4)
  - Vascular device infection [Unknown]
  - Viral infection [Unknown]
  - Pharyngitis streptococcal [Unknown]
  - Nasopharyngitis [Unknown]

NARRATIVE: CASE EVENT DATE: 20211201
